FAERS Safety Report 6634823-5 (Version None)
Quarter: 2010Q1

REPORT INFORMATION
  Report Type: 
  Country: None (occurrence: None)
  Receive Date: 20100315
  Receipt Date: 20100310
  Transmission Date: 20100710
  Serious: Yes (Death, Hospitalization)
  Sender: FDA-Public Use
  Company Number: US-MERCK-1002USA00005

PATIENT
  Age: 60 Year
  Sex: Female
  Weight: 66 kg

DRUGS (2)
  1. ZOLINZA [Suspect]
     Indication: LUNG NEOPLASM MALIGNANT
     Route: 048
     Dates: start: 20091124, end: 20091129
  2. BORTEZOMIB [Suspect]
     Indication: LUNG NEOPLASM MALIGNANT
     Route: 042
     Dates: start: 20091124, end: 20091127

REACTIONS (8)
  - DISEASE PROGRESSION [None]
  - DIZZINESS [None]
  - DYSPNOEA [None]
  - FAILURE TO THRIVE [None]
  - FATIGUE [None]
  - HYPONATRAEMIA [None]
  - HYPOXIA [None]
  - SYNCOPE [None]
